FAERS Safety Report 18703121 (Version 2)
Quarter: 2021Q1

REPORT INFORMATION
  Report Type: Spontaneous
  Country: US (occurrence: US)
  Receive Date: 20210105
  Receipt Date: 20210202
  Transmission Date: 20210419
  Serious: No
  Sender: FDA-Public Use
  Company Number: US-MYLANLABS-2020M1099974

PATIENT
  Sex: Female
  Weight: 77.1 kg

DRUGS (2)
  1. LIDOCAINE PATCH [Suspect]
     Active Substance: LIDOCAINE
     Indication: ARTHRITIS
     Dosage: 5 PERCENT, QD
     Route: 003
     Dates: start: 20201006, end: 20201020
  2. LIDOCAINE PATCH [Suspect]
     Active Substance: LIDOCAINE
     Indication: SPONDYLITIS

REACTIONS (3)
  - Off label use [Not Recovered/Not Resolved]
  - Product quality issue [Not Recovered/Not Resolved]
  - Product adhesion issue [Not Recovered/Not Resolved]
